FAERS Safety Report 11135003 (Version 1)
Quarter: 2015Q2

REPORT INFORMATION
  Report Type: Spontaneous
  Country: US (occurrence: US)
  Receive Date: 20150525
  Receipt Date: 20150525
  Transmission Date: 20150821
  Serious: Yes (Other)
  Sender: FDA-Public Use
  Company Number: US-PFIZER INC-2015168912

PATIENT
  Sex: Female

DRUGS (1)
  1. LYRICA [Suspect]
     Active Substance: PREGABALIN
     Indication: PAIN
     Dosage: UNK

REACTIONS (7)
  - Drug dependence [Unknown]
  - Weight increased [Unknown]
  - Swelling face [Unknown]
  - Peripheral swelling [Unknown]
  - Visual impairment [Unknown]
  - Activities of daily living impaired [Unknown]
  - Joint swelling [Unknown]
